FAERS Safety Report 7939264-6 (Version None)
Quarter: 2011Q4

REPORT INFORMATION
  Report Type: 
  Country: None (occurrence: None)
  Receive Date: 20111124
  Receipt Date: 20111118
  Transmission Date: 20120403
  Serious: Yes (Hospitalization, Other)
  Sender: FDA-Public Use
  Company Number: DE-BRISTOL-MYERS SQUIBB COMPANY-16119737

PATIENT
  Age: 61 Year
  Sex: Male
  Weight: 80 kg

DRUGS (2)
  1. TRUVADA [Suspect]
     Indication: HIV INFECTION
     Dates: end: 20111018
  2. REYATAZ [Suspect]
     Indication: HIV INFECTION
     Dates: start: 20100901

REACTIONS (2)
  - NEPHROLITHIASIS [None]
  - RENAL FAILURE CHRONIC [None]
